FAERS Safety Report 15869899 (Version 1)
Quarter: 2019Q1

REPORT INFORMATION
  Report Type: Report from Study
  Country: None (occurrence: CA)
  Receive Date: 20190125
  Receipt Date: 20190125
  Transmission Date: 20190417
  Serious: Yes (Other)
  Sender: FDA-Public Use
  Company Number: CA-ABBVIE-19K-028-2639640-00

PATIENT
  Sex: Female

DRUGS (2)
  1. HUMIRA [Suspect]
     Active Substance: ADALIMUMAB
     Route: 058
     Dates: start: 201812
  2. HUMIRA [Suspect]
     Active Substance: ADALIMUMAB
     Indication: RHEUMATOID ARTHRITIS
     Route: 058
     Dates: start: 20170622, end: 20181012

REACTIONS (4)
  - Arthritis [Not Recovered/Not Resolved]
  - Ingrowing nail [Recovered/Resolved]
  - Injection site pain [Not Recovered/Not Resolved]
  - Nail disorder [Not Recovered/Not Resolved]
